FAERS Safety Report 13366832 (Version 1)
Quarter: 2017Q1

REPORT INFORMATION
  Report Type: Spontaneous
  Country: US (occurrence: US)
  Receive Date: 20170323
  Receipt Date: 20170323
  Transmission Date: 20170429
  Serious: Yes (Disabling)
  Sender: FDA-Public Use
  Company Number: None

PATIENT
  Age: 61 Year
  Sex: Female
  Weight: 72 kg

DRUGS (6)
  1. VITAMIN C [Concomitant]
     Active Substance: ASCORBIC ACID
  2. ZOCOR [Concomitant]
     Active Substance: SIMVASTATIN
  3. TUMERIC [Concomitant]
     Active Substance: TURMERIC
  4. LEVOFLOXACIN. [Suspect]
     Active Substance: LEVOFLOXACIN
     Indication: HELICOBACTER INFECTION
     Dosage: ?          QUANTITY:2 TABLET(S);?
     Route: 048
  5. DIGOXIN. [Concomitant]
     Active Substance: DIGOXIN
  6. PEPPER AND GINGER [Concomitant]

REACTIONS (6)
  - Ligament sprain [None]
  - Arthralgia [None]
  - Red blood cell sedimentation rate increased [None]
  - Therapy cessation [None]
  - Gait disturbance [None]
  - Joint swelling [None]

NARRATIVE: CASE EVENT DATE: 20170215
